FAERS Safety Report 4667776-X (Version None)
Quarter: 2005Q2

REPORT INFORMATION
  Report Type: 
  Country: None (occurrence: None)
  Receive Date: 20050520
  Receipt Date: 20050330
  Transmission Date: 20051028
  Serious: Yes (Disabling)
  Sender: FDA-Public Use
  Company Number: JP-GLAXOSMITHKLINE-B0376303A

PATIENT
  Age: 72 Year
  Sex: Male

DRUGS (5)
  1. PAXIL [Suspect]
     Indication: DEPRESSION
     Route: 048
     Dates: start: 20030917, end: 20041222
  2. DEPROMEL [Suspect]
     Indication: DEPRESSION
     Route: 048
     Dates: start: 20010516, end: 20041222
  3. DOGMATYL [Suspect]
     Indication: DEPRESSION
     Dosage: 50MG TWICE PER DAY
     Route: 048
     Dates: start: 20030107, end: 20040303
  4. TOLEDOMIN [Concomitant]
     Indication: DEPRESSION
     Route: 048
     Dates: start: 20040820, end: 20041124
  5. TOFRANIL [Concomitant]
     Indication: DEPRESSION
     Route: 048
     Dates: start: 20040303, end: 20040623

REACTIONS (5)
  - CONDITION AGGRAVATED [None]
  - DEPRESSION [None]
  - DIZZINESS [None]
  - DYSKINESIA [None]
  - SALIVARY HYPERSECRETION [None]
